FAERS Safety Report 23842900 (Version 1)
Quarter: 2024Q2

REPORT INFORMATION
  Report Type: Spontaneous
  Country: CN (occurrence: CN)
  Receive Date: 20240510
  Receipt Date: 20240510
  Transmission Date: 20240716
  Serious: Yes (Hospitalization, Other)
  Sender: FDA-Public Use
  Company Number: CN-BAYER-2024A069362

PATIENT
  Age: 57 Year
  Sex: Female
  Weight: 70 kg

DRUGS (1)
  1. ULTRAVIST [Suspect]
     Active Substance: IOPROMIDE
     Indication: Computerised tomogram heart
     Dosage: 70 ML, ONCE
     Route: 042
     Dates: start: 20240507, end: 20240507

REACTIONS (7)
  - Loss of consciousness [Recovered/Resolved]
  - Eyelid rash [Recovered/Resolved]
  - Unresponsive to stimuli [Recovering/Resolving]
  - Foaming at mouth [Recovering/Resolving]
  - Chills [Recovering/Resolving]
  - Asthenia [Recovering/Resolving]
  - Heart rate decreased [None]

NARRATIVE: CASE EVENT DATE: 20240507
